FAERS Safety Report 13843819 (Version 7)
Quarter: 2018Q2

REPORT INFORMATION
  Report Type: Spontaneous
  Country: CN (occurrence: CN)
  Receive Date: 20170808
  Receipt Date: 20180617
  Transmission Date: 20180711
  Serious: Yes (Hospitalization, Other)
  Sender: FDA-Public Use
  Company Number: CN-B.I. PHARMACEUTICALS,INC./RIDGEFIELD-2017-BI-043054

PATIENT
  Age: 80 Year
  Sex: Female

DRUGS (7)
  1. SIFROL [Suspect]
     Active Substance: PRAMIPEXOLE
     Route: 065
  2. SELEGILINE [Concomitant]
     Active Substance: SELEGILINE
     Indication: PARKINSON^S DISEASE
     Route: 065
     Dates: end: 2014
  3. COENZYME Q10 [Concomitant]
     Active Substance: UBIDECARENONE
     Indication: PARKINSON^S DISEASE
     Route: 065
  4. SINEMET [Suspect]
     Active Substance: CARBIDOPA\LEVODOPA
     Indication: PARKINSON^S DISEASE
     Route: 065
  5. RASAGILINE. [Concomitant]
     Active Substance: RASAGILINE
     Indication: PARKINSON^S DISEASE
     Route: 065
     Dates: start: 2014
  6. SIFROL [Suspect]
     Active Substance: PRAMIPEXOLE
     Indication: PARKINSON^S DISEASE
     Route: 048
     Dates: start: 200810, end: 2013
  7. SIFROL [Suspect]
     Active Substance: PRAMIPEXOLE
     Dosage: DOSE + FREQUENCY OF ADMINISTRATION 0.75
     Route: 048
     Dates: start: 2013

REACTIONS (14)
  - Intestinal obstruction [Unknown]
  - Parkinson^s disease [Not Recovered/Not Resolved]
  - Dizziness [Unknown]
  - Dyskinesia [Unknown]
  - Hypopituitarism [Not Recovered/Not Resolved]
  - Insomnia [Not Recovered/Not Resolved]
  - Pollakiuria [Unknown]
  - Hypotension [Unknown]
  - Ovarian cancer [Not Recovered/Not Resolved]
  - Constipation [Unknown]
  - Hyposmia [Unknown]
  - Choking sensation [Unknown]
  - Cough [Unknown]
  - Chromaturia [Unknown]

NARRATIVE: CASE EVENT DATE: 2015
